FAERS Safety Report 24444649 (Version 1)
Quarter: 2024Q4

REPORT INFORMATION
  Report Type: Spontaneous
  Country: US (occurrence: None)
  Receive Date: 20241015
  Receipt Date: 20241015
  Transmission Date: 20250115
  Serious: No
  Sender: Public
  Company Number: None

PATIENT
  Age: 42 Year
  Sex: Female
  Weight: 97 kg

DRUGS (1)
  1. SUMATRIPTAN SUCCINATE [Suspect]
     Active Substance: SUMATRIPTAN SUCCINATE
     Indication: Migraine
     Dosage: FREQUENCY : AS NEEDED;?
     Route: 048
     Dates: start: 20231101, end: 20240710

REACTIONS (1)
  - Anxiety [None]

NARRATIVE: CASE EVENT DATE: 20240710
